FAERS Safety Report 9416218 (Version 3)
Quarter: 2013Q3

REPORT INFORMATION
  Report Type: Spontaneous
  Country: US (occurrence: None)
  Receive Date: 20130716
  Receipt Date: 20130801
  Transmission Date: 20140515
  Serious: Yes (Other)
  Sender: FDA-Public Use
  Company Number: JPI-P-033359

PATIENT
  Age: 26 Year
  Sex: Female

DRUGS (5)
  1. XYREM [Suspect]
     Indication: NARCOLEPSY
     Dosage: 9GM (4.5GM, 2 IN 1 D), ORAL
     Route: 048
     Dates: start: 20130419
  2. DISOPYRAMIDE [Suspect]
     Indication: PRODUCT USED FOR UNKNOWN INDICATION
  3. CITALOPRAM HYDROBROMIDE [Concomitant]
  4. DROSPIRENONE AND ETHINYL ESTRADIOL [Concomitant]
  5. CLINDAMYCIN PHOSPHATE, TRETINOIN [Concomitant]

REACTIONS (6)
  - Cardiac pacemaker insertion [None]
  - Pain [None]
  - Sleep disorder [None]
  - Dyspnoea [None]
  - Hypoaesthesia [None]
  - Heart rate increased [None]
